FAERS Safety Report 19064620 (Version 5)
Quarter: 2021Q4

REPORT INFORMATION
  Report Type: Report from Study
  Country: IL (occurrence: IL)
  Receive Date: 20210326
  Receipt Date: 20211110
  Transmission Date: 20220303
  Serious: Yes (Other)
  Sender: FDA-Public Use
  Company Number: IL-CELGENE-ISR-20210304819

PATIENT
  Age: 49 Year
  Sex: Male
  Weight: 61 kg

DRUGS (12)
  1. LUSPATERCEPT [Suspect]
     Active Substance: LUSPATERCEPT
     Indication: Thalassaemia beta
     Dosage: 1 MILLIGRAM/KILOGRAM
     Route: 058
     Dates: start: 20161120, end: 20191218
  2. LUSPATERCEPT [Suspect]
     Active Substance: LUSPATERCEPT
     Dosage: 1 MILLIGRAM/KILOGRAM
     Route: 058
     Dates: start: 20200108, end: 20210103
  3. ASPIRIN [Concomitant]
     Active Substance: ASPIRIN
     Indication: Thrombosis prophylaxis
     Dosage: 100 MILLIGRAM
     Route: 048
  4. CALCIUM CARBONATE\VITAMIN D [Concomitant]
     Active Substance: CALCIUM CARBONATE\VITAMIN D
     Indication: Prophylaxis
     Dosage: 600 + 200/ MG/IU
     Route: 048
     Dates: start: 20171116
  5. HYDROCORTISONE ACETATE [Concomitant]
     Active Substance: HYDROCORTISONE ACETATE
     Indication: Premedication
     Route: 030
     Dates: start: 20170730
  6. LORATADINE [Concomitant]
     Active Substance: LORATADINE
     Indication: Premedication
     Route: 048
     Dates: start: 20170730
  7. ASCORBIC ACID [Concomitant]
     Active Substance: ASCORBIC ACID
     Indication: Nutritional supplementation
     Dosage: 100 MILLIGRAM
     Route: 048
     Dates: start: 2006
  8. VITAMIN D [Concomitant]
     Active Substance: VITAMIN D NOS
     Indication: Prophylaxis
     Route: 048
     Dates: start: 20170630
  9. WHOLE BLOOD [Concomitant]
     Active Substance: WHOLE BLOOD
     Indication: Thalassaemia beta
     Dosage: 26 UNITS
     Route: 041
     Dates: start: 20200130, end: 20210103
  10. EXJADE [Concomitant]
     Active Substance: DEFERASIROX
     Indication: Chelation therapy
     Dosage: 1000 MILLIGRAM
     Route: 065
     Dates: start: 20141012, end: 20160924
  11. EXJADE [Concomitant]
     Active Substance: DEFERASIROX
     Dosage: 1500 MILLIGRAM
     Route: 065
     Dates: start: 20160925, end: 20170729
  12. EXJADE [Concomitant]
     Active Substance: DEFERASIROX
     Dosage: 1000 MILLIGRAM
     Route: 065
     Dates: start: 20170730

REACTIONS (1)
  - Extramedullary haemopoiesis [Not Recovered/Not Resolved]

NARRATIVE: CASE EVENT DATE: 20210101
